FAERS Safety Report 6660444-4 (Version None)
Quarter: 2010Q1

REPORT INFORMATION
  Report Type: 
  Country: None (occurrence: None)
  Receive Date: 20100331
  Receipt Date: 20100323
  Transmission Date: 20100710
  Serious: Yes (Hospitalization, Other)
  Sender: FDA-Public Use
  Company Number: US-ASTRAZENECA-2007UW05997

PATIENT
  Age: 51 Year
  Sex: Female
  Weight: 109.3 kg

DRUGS (15)
  1. SEROQUEL [Suspect]
     Indication: SLEEP DISORDER
     Dosage: 25-300 MG
     Route: 048
     Dates: start: 19970401, end: 20050101
  2. SEROQUEL [Suspect]
     Indication: DEPRESSION
     Dosage: 25-300 MG
     Route: 048
     Dates: start: 19970401, end: 20050101
  3. SEROQUEL [Suspect]
     Dosage: 25-300MG
     Route: 048
     Dates: start: 19990723
  4. SEROQUEL [Suspect]
     Dosage: 25-300MG
     Route: 048
     Dates: start: 19990723
  5. SEROQUEL [Suspect]
     Route: 048
     Dates: start: 20060907
  6. SEROQUEL [Suspect]
     Route: 048
     Dates: start: 20060907
  7. DEXATRIM [Concomitant]
     Route: 048
     Dates: start: 19910101, end: 19931101
  8. RISPERDAL [Concomitant]
     Dates: start: 20030101
  9. ZYPREXA [Concomitant]
     Dates: start: 20040101
  10. NEURONTIN [Concomitant]
     Dosage: 200-600MG
     Route: 048
     Dates: start: 19981019
  11. XANAX [Concomitant]
     Indication: BACK PAIN
     Dosage: 0.125-25MG
     Route: 048
     Dates: start: 19870128
  12. XANAX [Concomitant]
     Indication: ANXIETY DISORDER
     Dosage: 0.125-25MG
     Route: 048
     Dates: start: 19870128
  13. WELLBUTRIN [Concomitant]
     Dosage: 100-150MG
     Route: 048
     Dates: start: 19980925
  14. REMERON [Concomitant]
     Dosage: 30-45MG
     Route: 048
     Dates: start: 19990723
  15. TRAZODONE [Concomitant]
     Dosage: 50-100MG
     Route: 048
     Dates: start: 19990723

REACTIONS (10)
  - DEPRESSION [None]
  - DIABETES MELLITUS [None]
  - DIABETIC NEUROPATHY [None]
  - DIABETIC RETINOPATHY [None]
  - HYPERGLYCAEMIA [None]
  - PANCREATITIS [None]
  - PANCREATITIS ACUTE [None]
  - PANCREATITIS CHRONIC [None]
  - TYPE 1 DIABETES MELLITUS [None]
  - TYPE 2 DIABETES MELLITUS [None]
